FAERS Safety Report 9797542 (Version 1)
Quarter: 2014Q1

REPORT INFORMATION
  Report Type: Report from Study
  Country: US (occurrence: US)
  Receive Date: 20140106
  Receipt Date: 20140106
  Transmission Date: 20141002
  Serious: Yes (Other)
  Sender: FDA-Public Use
  Company Number: PHEH2013US026356

PATIENT
  Age: 57 Year
  Sex: Female

DRUGS (1)
  1. GILENYA [Suspect]
     Indication: MULTIPLE SCLEROSIS
     Dosage: 0.5 MG, QD
     Route: 048

REACTIONS (6)
  - Intervertebral disc disorder [Unknown]
  - Back pain [Unknown]
  - Insomnia [Recovering/Resolving]
  - Gastroenteritis viral [Recovering/Resolving]
  - Abdominal pain upper [Unknown]
  - Nausea [Unknown]
